FAERS Safety Report 18359126 (Version 2)
Quarter: 2020Q4

REPORT INFORMATION
  Report Type: Report from Study
  Country: US (occurrence: US)
  Receive Date: 20201008
  Receipt Date: 20201228
  Transmission Date: 20210114
  Serious: Yes (Hospitalization)
  Sender: FDA-Public Use
  Company Number: US-EMD SERONO-9189205

PATIENT
  Age: 64 Year
  Sex: Male

DRUGS (1)
  1. MAVENCLAD [Suspect]
     Active Substance: CLADRIBINE
     Indication: MULTIPLE SCLEROSIS
     Route: 048
     Dates: start: 20200911

REACTIONS (3)
  - Renal failure [Recovering/Resolving]
  - Oropharyngeal pain [Unknown]
  - Oesophagitis [Unknown]

NARRATIVE: CASE EVENT DATE: 202009
